FAERS Safety Report 24393157 (Version 5)
Quarter: 2025Q1

REPORT INFORMATION
  Report Type: Spontaneous
  Country: FR (occurrence: FR)
  Receive Date: 20241003
  Receipt Date: 20250206
  Transmission Date: 20250408
  Serious: Yes (Hospitalization, Other)
  Sender: MYLAN
  Company Number: None

PATIENT
  Age: 83 Year
  Sex: Male

DRUGS (11)
  1. AZACITIDINE [Suspect]
     Active Substance: AZACITIDINE
     Indication: Acute myeloid leukaemia
     Route: 058
     Dates: start: 20240521, end: 202406
  2. POSACONAZOLE [Suspect]
     Active Substance: POSACONAZOLE
     Indication: Fungal infection
     Dosage: 300 MILLIGRAM, QD (MORNING AND EVENING FOR 24 HOURS)
     Route: 048
     Dates: start: 20240530
  3. VENETOCLAX [Suspect]
     Active Substance: VENETOCLAX
     Indication: Acute myeloid leukaemia
     Route: 048
     Dates: start: 20240521, end: 20240521
  4. VENETOCLAX [Suspect]
     Active Substance: VENETOCLAX
     Indication: Haematological malignancy
     Dosage: 400 MILLIGRAM, QD
     Route: 048
     Dates: start: 20240521, end: 20240521
  5. VENETOCLAX [Suspect]
     Active Substance: VENETOCLAX
     Route: 048
     Dates: start: 20240521, end: 202406
  6. VENETOCLAX [Suspect]
     Active Substance: VENETOCLAX
     Dosage: 400 MILLIGRAM, QD
     Route: 048
     Dates: start: 20240521, end: 202406
  7. VENETOCLAX [Suspect]
     Active Substance: VENETOCLAX
     Route: 048
     Dates: start: 20240522, end: 20240522
  8. VENETOCLAX [Suspect]
     Active Substance: VENETOCLAX
     Route: 048
     Dates: start: 20240523, end: 20240523
  9. VENETOCLAX [Suspect]
     Active Substance: VENETOCLAX
     Route: 048
     Dates: start: 20240524, end: 20240524
  10. VENETOCLAX [Suspect]
     Active Substance: VENETOCLAX
     Route: 048
     Dates: start: 20240524, end: 20240524
  11. PIPERACILLIN SODIUM\TAZOBACTAM SODIUM [Concomitant]
     Active Substance: PIPERACILLIN SODIUM\TAZOBACTAM SODIUM
     Indication: Pyrexia
     Dosage: 4 GRAM, TID
     Route: 042
     Dates: start: 20240606

REACTIONS (12)
  - Vascular purpura [Recovering/Resolving]
  - Eczema [Unknown]
  - Toxic skin eruption [Unknown]
  - Skin exfoliation [Unknown]
  - Dermatitis exfoliative generalised [Unknown]
  - Bone marrow failure [Unknown]
  - Face oedema [Unknown]
  - Blood immunoglobulin A increased [Unknown]
  - Erythema [Unknown]
  - Rash maculo-papular [Unknown]
  - Pyrexia [Unknown]
  - Anaemia [Unknown]

NARRATIVE: CASE EVENT DATE: 20240101
